FAERS Safety Report 5429847-X (Version None)
Quarter: 2007Q3

REPORT INFORMATION
  Report Type: 
  Country: None (occurrence: None)
  Receive Date: 20070829
  Receipt Date: 20070817
  Transmission Date: 20080115
  Serious: Yes (Other)
  Sender: FDA-Public Use
  Company Number: US-PFIZER INC-2007069232

PATIENT
  Sex: Female
  Weight: 49 kg

DRUGS (4)
  1. LYRICA [Suspect]
     Indication: HERPES ZOSTER
  2. NEXIUM [Concomitant]
  3. EVISTA [Concomitant]
  4. ALL OTHER THERAPEUTIC PRODUCTS [Concomitant]

REACTIONS (4)
  - DYSPNOEA [None]
  - HERPES ZOSTER [None]
  - MYOCARDIAL INFARCTION [None]
  - WEIGHT DECREASED [None]
